FAERS Safety Report 9211146 (Version 1)
Quarter: 2013Q2

REPORT INFORMATION
  Report Type: Spontaneous
  Country: US (occurrence: US)
  Receive Date: 20130404
  Receipt Date: 20130404
  Transmission Date: 20140414
  Serious: Yes (Other)
  Sender: FDA-Public Use
  Company Number: US-PFIZER INC-2013105987

PATIENT
  Age: 44 Year
  Sex: Female
  Weight: 93.4 kg

DRUGS (4)
  1. LYRICA [Suspect]
     Indication: NEURALGIA
     Dosage: 100 MG, 2X/DAY
     Route: 048
     Dates: start: 201301, end: 20130331
  2. LYRICA [Suspect]
     Dosage: 200 MG, FIVE TIMES A DAY
     Route: 048
     Dates: start: 20130401
  3. CYMBALTA [Concomitant]
     Indication: DEPRESSION
     Dosage: 90 MG, 1X/DAY
  4. SEROQUEL [Concomitant]
     Dosage: 100 MG, 1X/DAY

REACTIONS (3)
  - Overdose [Unknown]
  - Convulsion [Unknown]
  - Back pain [Unknown]
